FAERS Safety Report 5451561-5 (Version None)
Quarter: 2007Q3

REPORT INFORMATION
  Report Type: 
  Country: None (occurrence: None)
  Receive Date: 20070913
  Receipt Date: 20070910
  Transmission Date: 20080115
  Serious: Yes (Other)
  Sender: FDA-Public Use
  Company Number: GB-ROXANE LABORATORIES, INC-2007-UK-02837UK

PATIENT
  Age: 36 Year
  Sex: Female
  Weight: 65 kg

DRUGS (3)
  1. BUSCOPAN (0015/5005R/0074R) [Suspect]
     Indication: SEDATION
     Route: 042
     Dates: start: 20070817
  2. MIDAZOLAM HCL [Suspect]
     Indication: SEDATION
     Route: 042
     Dates: start: 20070817
  3. PETHIDINE [Suspect]
     Route: 042

REACTIONS (1)
  - URTICARIA [None]
